FAERS Safety Report 4921540-2 (Version None)
Quarter: 2006Q1

REPORT INFORMATION
  Report Type: 
  Country: None (occurrence: None)
  Receive Date: 20060222
  Receipt Date: 20060222
  Transmission Date: 20060701
  Serious: Yes (Life-Threatening, Hospitalization, Other)
  Sender: FDA-Public Use
  Company Number: None

PATIENT
  Sex: Female
  Weight: 65.7716 kg

DRUGS (1)
  1. ORTHO EVRA [Suspect]
     Indication: CONTRACEPTION
     Dosage: 1 PATCH 1 PATCH / WK TRANSDERMAL
     Route: 062

REACTIONS (11)
  - BACK PAIN [None]
  - DEFAECATION URGENCY [None]
  - DIARRHOEA [None]
  - DYSPNOEA [None]
  - INSOMNIA [None]
  - OEDEMA PERIPHERAL [None]
  - PAIN [None]
  - PARAESTHESIA [None]
  - PULMONARY EMBOLISM [None]
  - SHOULDER PAIN [None]
  - SKIN DISCOLOURATION [None]
